FAERS Safety Report 7720540-7 (Version None)
Quarter: 2011Q3

REPORT INFORMATION
  Report Type: 
  Country: None (occurrence: None)
  Receive Date: 20110831
  Receipt Date: 20110831
  Transmission Date: 20111222
  Serious: Yes (Other)
  Sender: FDA-Public Use
  Company Number: None

PATIENT
  Age: 59 Year
  Sex: Male
  Weight: 84 kg

DRUGS (11)
  1. LISINOPRIL [Suspect]
     Indication: HYPERTENSION
     Dosage: 20 MG
     Route: 048
     Dates: start: 20110525, end: 20110527
  2. ASPIRIN [Concomitant]
     Route: 048
  3. NICOTINE [Concomitant]
     Route: 062
  4. PANTOPRAZOLE [Concomitant]
     Route: 048
  5. CLOPIDOGREL [Concomitant]
     Route: 048
  6. ENOXAPARIN [Concomitant]
     Route: 058
  7. AZITHROMYCIN [Concomitant]
     Route: 042
  8. THIAMINE [Concomitant]
     Route: 048
  9. CEFTRIAXONE [Concomitant]
     Route: 042
  10. METOPROLOL SUCCINATE EXTENDED RELEASE [Concomitant]
     Route: 048
  11. SIMAVASTATIN [Concomitant]
     Route: 048

REACTIONS (4)
  - PNEUMONIA [None]
  - HYPERTENSION [None]
  - ANAEMIA [None]
  - ANGIOEDEMA [None]
